FAERS Safety Report 5875863-3 (Version None)
Quarter: 2008Q3

REPORT INFORMATION
  Report Type: 
  Country: None (occurrence: None)
  Receive Date: 20080908
  Receipt Date: 20080826
  Transmission Date: 20090109
  Serious: Yes (Hospitalization)
  Sender: FDA-Public Use
  Company Number: 2008BI022112

PATIENT
  Age: 65 Year
  Sex: Female

DRUGS (1)
  1. AVONEX [Suspect]
     Indication: MULTIPLE SCLEROSIS
     Dosage: 30 UG QW IM
     Route: 030
     Dates: start: 20080130

REACTIONS (8)
  - DEHYDRATION [None]
  - HYPOPHAGIA [None]
  - KIDNEY INFECTION [None]
  - LABORATORY TEST ABNORMAL [None]
  - LUNG DISORDER [None]
  - LUNG INFECTION [None]
  - PYREXIA [None]
  - RENAL DISORDER [None]
